FAERS Safety Report 6260472-7 (Version None)
Quarter: 2009Q3

REPORT INFORMATION
  Report Type: 
  Country: None (occurrence: None)
  Receive Date: 20090706
  Receipt Date: 20090625
  Transmission Date: 20100115
  Serious: Yes (Hospitalization)
  Sender: FDA-Public Use
  Company Number: 2008SP015935

PATIENT
  Age: 23 Year
  Sex: Female
  Weight: 53 kg

DRUGS (4)
  1. PEG-INTRON [Suspect]
     Indication: HEPATITIS B
     Dosage: 80 MCG; QW, 80 MCG; QW, 30 MCG, QW
     Dates: start: 20080414, end: 20080608
  2. PEG-INTRON [Suspect]
     Indication: HEPATITIS B
     Dosage: 80 MCG; QW, 80 MCG; QW, 30 MCG, QW
     Dates: start: 20080609, end: 20080729
  3. PEG-INTRON [Suspect]
     Indication: HEPATITIS B
     Dosage: 80 MCG; QW, 80 MCG; QW, 30 MCG, QW
     Dates: start: 20080819, end: 20080819
  4. PEG-INTRON [Suspect]

REACTIONS (5)
  - ALANINE AMINOTRANSFERASE INCREASED [None]
  - ASPARTATE AMINOTRANSFERASE INCREASED [None]
  - DECREASED APPETITE [None]
  - FATIGUE [None]
  - GAMMA-GLUTAMYLTRANSFERASE INCREASED [None]
